FAERS Safety Report 4899987-2 (Version None)
Quarter: 2006Q1

REPORT INFORMATION
  Report Type: 
  Country: None (occurrence: None)
  Receive Date: 20060203
  Receipt Date: 20060125
  Transmission Date: 20060701
  Serious: Yes (Death, Hospitalization)
  Sender: FDA-Public Use
  Company Number: JP-JNJFOC-20051106606

PATIENT
  Sex: Female
  Weight: 60 kg

DRUGS (24)
  1. REMICADE [Suspect]
     Route: 042
  2. REMICADE [Suspect]
     Route: 042
  3. REMICADE [Suspect]
     Route: 042
  4. REMICADE [Suspect]
     Route: 042
  5. REMICADE [Suspect]
     Route: 042
  6. REMICADE [Suspect]
     Route: 042
  7. REMICADE [Suspect]
     Indication: RHEUMATOID ARTHRITIS
     Route: 042
  8. RHEUMATREX [Suspect]
     Route: 048
  9. RHEUMATREX [Suspect]
     Route: 048
  10. RHEUMATREX [Suspect]
     Route: 048
  11. RHEUMATREX [Suspect]
     Route: 048
  12. RHEUMATREX [Suspect]
     Route: 048
  13. RHEUMATREX [Suspect]
     Route: 048
  14. RHEUMATREX [Suspect]
     Indication: RHEUMATOID ARTHRITIS
     Route: 048
  15. PREDNISOLONE [Suspect]
     Indication: RHEUMATOID ARTHRITIS
     Dosage: 6MG-80MG
     Route: 048
  16. LOXONIN [Concomitant]
     Indication: ARTHRALGIA
     Route: 048
  17. LOXONIN [Concomitant]
     Indication: RHEUMATOID ARTHRITIS
     Route: 048
  18. FOLIAMIN [Concomitant]
     Indication: PROPHYLAXIS
     Route: 048
  19. SELBEX [Concomitant]
     Route: 048
  20. DIDRONEL [Concomitant]
     Route: 048
  21. MOHRUS TAPE [Concomitant]
  22. HALCION [Concomitant]
     Route: 048
  23. PL [Concomitant]
     Indication: HEADACHE
     Route: 048
  24. EVISTA [Concomitant]
     Indication: OSTEOPOROSIS
     Route: 048

REACTIONS (9)
  - ALOPECIA [None]
  - DISSEMINATED INTRAVASCULAR COAGULATION [None]
  - DRUG INTERACTION [None]
  - EYE MOVEMENT DISORDER [None]
  - HEADACHE [None]
  - MENINGITIS LISTERIA [None]
  - MENINGITIS STREPTOCOCCAL [None]
  - PUPILLARY REFLEX IMPAIRED [None]
  - SEPSIS [None]
